FAERS Safety Report 11281331 (Version 1)
Quarter: 2015Q3

REPORT INFORMATION
  Report Type: Spontaneous
  Country: GB (occurrence: GB)
  Receive Date: 20150717
  Receipt Date: 20150717
  Transmission Date: 20151125
  Serious: Yes (Other)
  Sender: FDA-Public Use
  Company Number: GB-BAUSCH-BL-2015-016943

PATIENT
  Age: 67 Year
  Sex: Male

DRUGS (2)
  1. DEXAMETHASONE. [Suspect]
     Active Substance: DEXAMETHASONE
     Indication: PLASMA CELL MYELOMA
     Route: 065
  2. VELCADE [Suspect]
     Active Substance: BORTEZOMIB
     Indication: PLASMA CELL MYELOMA
     Route: 065

REACTIONS (9)
  - Nausea [Unknown]
  - Bone pain [Unknown]
  - Arrhythmia [Unknown]
  - Disease progression [Unknown]
  - Fatigue [Unknown]
  - Pathological fracture [Unknown]
  - Thrombocytopenia [Unknown]
  - Diarrhoea [Unknown]
  - Anaemia [Unknown]

NARRATIVE: CASE EVENT DATE: 20091216
